FAERS Safety Report 4539623-8 (Version None)
Quarter: 2004Q4

REPORT INFORMATION
  Report Type: 
  Country: None (occurrence: None)
  Receive Date: 20041228
  Receipt Date: 20041001
  Transmission Date: 20050328
  Serious: Yes (Hospitalization)
  Sender: FDA-Public Use
  Company Number: PHBS2004JP13059

PATIENT
  Age: 44 Year
  Sex: Male

DRUGS (2)
  1. DEPAKENE [Concomitant]
     Indication: EPILEPSY
     Dosage: UNK, UNK
     Route: 065
  2. TEGRETOL [Suspect]
     Indication: EPILEPSY
     Route: 065
     Dates: start: 20030701, end: 20040101

REACTIONS (9)
  - DIABETES MELLITUS INSULIN-DEPENDENT [None]
  - DIABETIC KETOACIDOSIS [None]
  - HYPERGLYCAEMIA [None]
  - KETONURIA [None]
  - LYMPHOCYTE STIMULATION TEST POSITIVE [None]
  - METABOLIC ACIDOSIS [None]
  - POLYDIPSIA [None]
  - THIRST [None]
  - VOMITING [None]
